FAERS Safety Report 9602756 (Version 2)
Quarter: 2013Q4

REPORT INFORMATION
  Report Type: Spontaneous
  Country: GB (occurrence: GB)
  Receive Date: 20131007
  Receipt Date: 20131104
  Transmission Date: 20140711
  Serious: Yes (Other)
  Sender: FDA-Public Use
  Company Number: GB-GLAXOSMITHKLINE-B0926680A

PATIENT
  Age: 73 Year
  Sex: Male

DRUGS (6)
  1. NIQUITIN MINI LOZENGES 4MG [Suspect]
     Indication: PRODUCT USED FOR UNKNOWN INDICATION
     Dosage: 4MG SEE DOSAGE TEXT
     Route: 062
     Dates: start: 2013, end: 20130930
  2. NICOTINE [Suspect]
     Indication: EX-TOBACCO USER
     Route: 065
     Dates: start: 2013, end: 20130930
  3. GLICLAZIDE [Concomitant]
     Dosage: 80MG TWICE PER DAY
  4. CLOPIDOGREL [Concomitant]
     Dosage: 75MG PER DAY
  5. METFORMIN [Concomitant]
     Dosage: 500MG TWICE PER DAY
  6. UNKNOWN DRUG [Concomitant]

REACTIONS (9)
  - Cognitive disorder [Not Recovered/Not Resolved]
  - Diabetes mellitus inadequate control [Unknown]
  - Cerebrovascular accident [Unknown]
  - Transient ischaemic attack [Unknown]
  - Confusional state [Unknown]
  - Memory impairment [Unknown]
  - Nicotine dependence [Unknown]
  - Blood glucose fluctuation [Unknown]
  - Metabolic disorder [Unknown]
